FAERS Safety Report 16732772 (Version 5)
Quarter: 2025Q3

REPORT INFORMATION
  Report Type: Spontaneous
  Country: CA (occurrence: CA)
  Receive Date: 20190823
  Receipt Date: 20250915
  Transmission Date: 20251020
  Serious: Yes (Life-Threatening, Other)
  Sender: AUROBINDO
  Company Number: CA-AUROBINDO-AUR-APL-2019-055418

PATIENT
  Age: 40 Year
  Sex: Female

DRUGS (15)
  1. GABAPENTIN [Interacting]
     Active Substance: GABAPENTIN
     Indication: Migraine
     Route: 065
  2. GABAPENTIN [Interacting]
     Active Substance: GABAPENTIN
     Route: 065
  3. GABAPENTIN [Interacting]
     Active Substance: GABAPENTIN
     Route: 065
  4. GABAPENTIN [Interacting]
     Active Substance: GABAPENTIN
     Dosage: 600 MILLIGRAM, ONCE A DAY
     Route: 065
  5. AIMOVIG [Interacting]
     Active Substance: ERENUMAB-AOOE
     Indication: Migraine
     Route: 058
  6. AIMOVIG [Interacting]
     Active Substance: ERENUMAB-AOOE
     Route: 058
  7. AIMOVIG [Interacting]
     Active Substance: ERENUMAB-AOOE
  8. AIMOVIG [Interacting]
     Active Substance: ERENUMAB-AOOE
     Indication: Migraine
     Route: 058
  9. AIMOVIG [Interacting]
     Active Substance: ERENUMAB-AOOE
     Indication: Migraine
     Route: 065
  10. TOPAMAX [Interacting]
     Active Substance: TOPIRAMATE
     Indication: Product used for unknown indication
     Route: 065
  11. TOPAMAX [Interacting]
     Active Substance: TOPIRAMATE
     Route: 065
  12. ZOPICLONE [Interacting]
     Active Substance: ZOPICLONE
     Indication: Product used for unknown indication
     Route: 065
  13. TOPIRAMATE [Interacting]
     Active Substance: TOPIRAMATE
     Indication: Product used for unknown indication
     Route: 065
  14. TOPIRAMATE [Interacting]
     Active Substance: TOPIRAMATE
     Route: 065
  15. PANTOPRAZOLE SODIUM [Interacting]
     Active Substance: PANTOPRAZOLE SODIUM
     Indication: Product used for unknown indication
     Route: 065

REACTIONS (17)
  - Panic attack [Recovered/Resolved]
  - Drug interaction [Recovered/Resolved]
  - Amnesia [Recovered/Resolved]
  - Aphasia [Recovered/Resolved]
  - Blood pressure increased [Recovered/Resolved]
  - Diarrhoea [Recovered/Resolved]
  - Feeling hot [Recovered/Resolved]
  - Hyperhidrosis [Recovered/Resolved]
  - Mental impairment [Recovered/Resolved]
  - Migraine [Recovered/Resolved]
  - Gastrointestinal haemorrhage [Recovered/Resolved]
  - Sepsis [Recovered/Resolved]
  - Osteitis [Recovered/Resolved]
  - Peptic ulcer perforation [Recovered/Resolved]
  - Drug ineffective [Recovered/Resolved]
  - Concomitant disease aggravated [Not Recovered/Not Resolved]
  - Brain fog [Not Recovered/Not Resolved]
